FAERS Safety Report 8292247-1 (Version None)
Quarter: 2012Q2

REPORT INFORMATION
  Report Type: 
  Country: None (occurrence: None)
  Receive Date: 20120413
  Receipt Date: 20120402
  Transmission Date: 20120825
  Serious: Yes (Other)
  Sender: FDA-Public Use
  Company Number: DSA_56055_2012

PATIENT
  Age: 46 Year
  Sex: Male

DRUGS (2)
  1. WELLBUTRIN XL [Suspect]
     Indication: DEPRESSION
     Dosage: (300 MG QD)
  2. LORAZEPAM [Concomitant]

REACTIONS (2)
  - HYPERTENSION [None]
  - HEADACHE [None]
